FAERS Safety Report 9448260 (Version 1)
Quarter: 2013Q3

REPORT INFORMATION
  Report Type: Spontaneous
  Country: IT (occurrence: IT)
  Receive Date: 20130808
  Receipt Date: 20130808
  Transmission Date: 20140515
  Serious: Yes (Other)
  Sender: FDA-Public Use
  Company Number: IT-PFIZER INC-2013228431

PATIENT
  Age: 72 Year
  Sex: Female

DRUGS (11)
  1. FELDENE [Suspect]
     Indication: NECK PAIN
     Dosage: 1 DF, DAILY
     Route: 048
     Dates: start: 20130701, end: 20130707
  2. CONTRAMAL [Suspect]
     Indication: NECK PAIN
     Dosage: 1 DF, DAILY
     Route: 048
     Dates: start: 20130706, end: 20130707
  3. SIRDALUD [Suspect]
     Indication: NECK PAIN
     Dosage: 1 DF, DAILY
     Route: 048
     Dates: start: 20130701, end: 20130707
  4. EUTIROX [Concomitant]
     Dosage: UNK
     Route: 048
  5. OMEPRAZEN [Concomitant]
     Dosage: UNK
     Route: 048
  6. CYMBALTA [Concomitant]
     Dosage: UNK
     Route: 048
  7. TRITTICO [Concomitant]
     Dosage: UNK
     Route: 048
  8. CLODY [Concomitant]
     Dosage: UNK
  9. ALIFLUS [Concomitant]
     Dosage: UNK
  10. VENTOLIN [Concomitant]
     Dosage: UNK
  11. GAVISCON [Concomitant]
     Dosage: UNK

REACTIONS (2)
  - Asthenia [Recovering/Resolving]
  - Balance disorder [Recovering/Resolving]
